FAERS Safety Report 4655573-0 (Version None)
Quarter: 2005Q2

REPORT INFORMATION
  Report Type: 
  Country: None (occurrence: None)
  Receive Date: 20050505
  Receipt Date: 20050421
  Transmission Date: 20051028
  Serious: Yes (Hospitalization)
  Sender: FDA-Public Use
  Company Number: 2005064254

PATIENT
  Age: 45 Year
  Sex: Female

DRUGS (1)
  1. BEXTRA [Suspect]
     Indication: PAIN
     Dosage: 20 MG (20 MG, 1 IN 1 D), ORAL
     Route: 048
     Dates: start: 20040301

REACTIONS (9)
  - ABDOMINAL PAIN UPPER [None]
  - COLD SWEAT [None]
  - DIARRHOEA [None]
  - INCORRECT DRUG DOSAGE FORM ADMINISTERED [None]
  - JOINT SWELLING [None]
  - KIDNEY INFECTION [None]
  - PAIN OF SKIN [None]
  - SURGERY [None]
  - VOMITING [None]
